FAERS Safety Report 21061325 (Version 1)
Quarter: 2022Q3

REPORT INFORMATION
  Report Type: Spontaneous
  Country: CA (occurrence: CA)
  Receive Date: 20220709
  Receipt Date: 20220709
  Transmission Date: 20221027
  Serious: Yes (Other)
  Sender: FDA-Public Use
  Company Number: CA-TEVA-2022-CA-2052417

PATIENT
  Age: 67 Year
  Sex: Female

DRUGS (8)
  1. IMATINIB MESYLATE [Suspect]
     Active Substance: IMATINIB MESYLATE
     Indication: Chronic myeloid leukaemia
     Dosage: 200 MILLIGRAM DAILY;
     Route: 048
  2. IMATINIB MESYLATE [Suspect]
     Active Substance: IMATINIB MESYLATE
     Dosage: 300 MILLIGRAM DAILY;
     Route: 048
  3. IMATINIB MESYLATE [Suspect]
     Active Substance: IMATINIB MESYLATE
     Dosage: 400 MILLIGRAM DAILY;
     Route: 048
  4. EZETIMIBE [Concomitant]
     Active Substance: EZETIMIBE
     Indication: Product used for unknown indication
     Dosage: 10 MILLIGRAM DAILY;
     Route: 048
  5. PANTOPRAZOLE SODIUM [Concomitant]
     Active Substance: PANTOPRAZOLE SODIUM
     Indication: Product used for unknown indication
     Dosage: 40 MILLIGRAM DAILY;
     Route: 048
  6. ROSUVASTATIN [Concomitant]
     Active Substance: ROSUVASTATIN
     Indication: Product used for unknown indication
     Dosage: 10 MILLIGRAM DAILY;
     Route: 048
  7. TAMOXIFEN [Concomitant]
     Active Substance: TAMOXIFEN
     Indication: Product used for unknown indication
     Dosage: 20 MILLIGRAM DAILY;
     Route: 048
  8. ZOPICLONE [Concomitant]
     Active Substance: ZOPICLONE
     Indication: Product used for unknown indication
     Route: 048

REACTIONS (5)
  - Periorbital oedema [Recovered/Resolved]
  - Rash [Recovered/Resolved]
  - Rash pruritic [Recovered/Resolved]
  - Visual impairment [Recovered/Resolved]
  - Drug intolerance [Recovered/Resolved]
